FAERS Safety Report 7589230-8 (Version None)
Quarter: 2011Q3

REPORT INFORMATION
  Report Type: 
  Country: None (occurrence: None)
  Receive Date: 20110705
  Receipt Date: 20110623
  Transmission Date: 20111222
  Serious: No
  Sender: FDA-Public Use
  Company Number: US-JNJFOC-20110611801

PATIENT
  Age: 16 Year
  Sex: Female

DRUGS (4)
  1. INVEGA [Suspect]
     Indication: BIPOLAR DISORDER
     Route: 048
     Dates: start: 20110501
  2. INVEGA [Suspect]
     Route: 048
     Dates: start: 20110401, end: 20110501
  3. DEPO-PROVERA [Concomitant]
     Indication: CONTRACEPTION
     Route: 030
  4. PRISTIQ [Concomitant]
     Route: 048

REACTIONS (2)
  - GALACTORRHOEA [None]
  - BLOOD PROLACTIN INCREASED [None]
